FAERS Safety Report 6736015-8 (Version None)
Quarter: 2010Q2

REPORT INFORMATION
  Report Type: 
  Country: None (occurrence: None)
  Receive Date: 20100521
  Receipt Date: 20100512
  Transmission Date: 20101027
  Serious: Yes (Other)
  Sender: FDA-Public Use
  Company Number: US-B.I. PHARMACEUTICALS,INC./RIDGEFIELD-2010-BP-05399BP

PATIENT
  Sex: Male

DRUGS (1)
  1. ZANTAC 150 [Suspect]
     Indication: DYSPEPSIA
     Dosage: 150 MG
     Route: 048
     Dates: start: 20100501, end: 20100511

REACTIONS (5)
  - DYSARTHRIA [None]
  - EYE PAIN [None]
  - FACIAL NERVE DISORDER [None]
  - LIP SWELLING [None]
  - SWOLLEN TONGUE [None]
